FAERS Safety Report 6578914-6 (Version None)
Quarter: 2010Q1

REPORT INFORMATION
  Report Type: 
  Country: None (occurrence: None)
  Receive Date: 20100212
  Receipt Date: 20100204
  Transmission Date: 20100710
  Serious: Yes (Other)
  Sender: FDA-Public Use
  Company Number: US-BIOGENIDEC-2009BI041720

PATIENT
  Age: 53 Year
  Sex: Female
  Weight: 65 kg

DRUGS (3)
  1. AVONEX [Suspect]
     Indication: MULTIPLE SCLEROSIS
     Route: 030
     Dates: start: 19990101
  2. AVONEX [Suspect]
     Route: 030
  3. AVONEX [Suspect]
     Route: 030
     Dates: end: 20091101

REACTIONS (7)
  - ABASIA [None]
  - ANAL CANCER STAGE II [None]
  - FALL [None]
  - MUSCLE SPASMS [None]
  - SECONDARY PROGRESSIVE MULTIPLE SCLEROSIS [None]
  - UTERINE LEIOMYOMA [None]
  - WEIGHT BEARING DIFFICULTY [None]
